FAERS Safety Report 14033586 (Version 2)
Quarter: 2018Q1

REPORT INFORMATION
  Report Type: Spontaneous
  Country: JP (occurrence: JP)
  Receive Date: 20171003
  Receipt Date: 20180228
  Transmission Date: 20180508
  Serious: Yes (Other)
  Sender: FDA-Public Use
  Company Number: JP-AMGEN-JPNSP2017149456

PATIENT
  Age: 67 Year
  Sex: Female

DRUGS (1)
  1. G-LASTA [Suspect]
     Active Substance: PEGFILGRASTIM
     Indication: FEBRILE NEUTROPENIA
     Dosage: UNK
     Route: 058
     Dates: start: 20170908

REACTIONS (1)
  - Aortitis [Recovered/Resolved]

NARRATIVE: CASE EVENT DATE: 20170910
